FAERS Safety Report 22104361 (Version 8)
Quarter: 2024Q4

REPORT INFORMATION
  Report Type: Spontaneous
  Country: US (occurrence: US)
  Receive Date: 20230316
  Receipt Date: 20241002
  Transmission Date: 20250115
  Serious: Yes (Other)
  Sender: PFIZER
  Company Number: US-PFIZER INC-PV202300046488

PATIENT
  Age: 72 Year
  Sex: Female
  Weight: 78.47 kg

DRUGS (49)
  1. IBRANCE [Suspect]
     Active Substance: PALBOCICLIB
     Indication: Breast cancer
     Dosage: 125 MG
  2. IBRANCE [Suspect]
     Active Substance: PALBOCICLIB
     Dosage: 100 MG, CYCLIC (DAILY WITH FOOD TAKE FOR 21 DAYS, THEN OFF FOR 7 DAYS)
     Route: 048
  3. IBRANCE [Suspect]
     Active Substance: PALBOCICLIB
     Dosage: DAILY WITH FOOD TAKE FOR 21 DAYS, THEN OFF FOR 7 DAYS
     Route: 048
  4. IBRANCE [Suspect]
     Active Substance: PALBOCICLIB
     Dosage: 125 MG, DAILY
     Dates: start: 20230215
  5. IBRANCE [Suspect]
     Active Substance: PALBOCICLIB
     Dosage: UNK
     Dates: start: 202303
  6. IBRANCE [Suspect]
     Active Substance: PALBOCICLIB
     Dosage: 100 MG, DAILY
     Dates: start: 20230424
  7. IBRANCE [Suspect]
     Active Substance: PALBOCICLIB
     Dosage: TAKE 1 TABLET (75 MG TOTAL) BY MOUTH DAILY WITH FOOD TAKE FOR 21 DAYS, THEN OFF FOR 7 DAYS
     Route: 048
     Dates: start: 20231106, end: 20240827
  8. FASLODEX [Concomitant]
     Active Substance: FULVESTRANT
     Indication: Breast cancer
     Dosage: Q 28 DAYS
  9. FASLODEX [Concomitant]
     Active Substance: FULVESTRANT
     Dosage: UNK
     Dates: start: 20230703
  10. FASLODEX [Concomitant]
     Active Substance: FULVESTRANT
     Dosage: INJECT 10 ML (500 MG TOTAL) INTO THE SHOULDER, THIGH, OR BUTTOCKS EVERY 30 (THIRTY) DAYS- INTRAMUSCU
     Route: 030
  11. ERYTHROPOIETIN [Concomitant]
     Active Substance: ERYTHROPOIETIN
     Indication: Anaemia
     Dosage: 60000 IU, WEEKLY
  12. GABAPENTIN [Concomitant]
     Active Substance: GABAPENTIN
     Indication: Neuropathy peripheral
     Dosage: HOUR OF SLEEP
  13. ACETAMINOPHEN [Concomitant]
     Active Substance: ACETAMINOPHEN
     Dosage: UNK
  14. ALBUTEROL [Concomitant]
     Active Substance: ALBUTEROL
     Dosage: UNK
  15. AMLODIPINE BENZOATE [Concomitant]
     Active Substance: AMLODIPINE BENZOATE
     Dosage: TAKE 5 MG BY MOUTH DAILY - ORAL
     Route: 048
  16. ASPIRIN [Concomitant]
     Active Substance: ASPIRIN
     Dosage: TAKE 1 (ONE) TABLET (81 MG TOTAL) BY MOUTH DAILY
     Route: 048
  17. ATORVASTATIN [Concomitant]
     Active Substance: ATORVASTATIN
     Dosage: UNK
  18. CARVEDILOL [Concomitant]
     Active Substance: CARVEDILOL
     Dosage: UNK
  19. CLONAZEPAM [Concomitant]
     Active Substance: CLONAZEPAM
     Dosage: UNK
  20. COLESEVELAM [Concomitant]
     Active Substance: COLESEVELAM
     Dosage: UNK
  21. XGEVA [Concomitant]
     Active Substance: DENOSUMAB
     Dosage: INJECT 1.7 ML (120 MG TOTAL) UNDER THE SKIN EVERY 3 (THREE) MONTHS- SUBCUTANEOUS
     Route: 058
  22. DULAGLUTIDE [Concomitant]
     Active Substance: DULAGLUTIDE
     Dosage: UNK
  23. FULVESTRANT [Concomitant]
     Active Substance: FULVESTRANT
     Dosage: UNK
  24. INSULIN GLARGINE [Concomitant]
     Active Substance: INSULIN GLARGINE
     Dosage: UNK
  25. LIDOCAINE [Concomitant]
     Active Substance: LIDOCAINE
     Dosage: UNK
  26. LISINOPRIL [Concomitant]
     Active Substance: LISINOPRIL
     Dosage: UNK
  27. LOPERAMIDE [Concomitant]
     Active Substance: LOPERAMIDE
     Dosage: UNK
  28. LORAZEPAM [Concomitant]
     Active Substance: LORAZEPAM
     Dosage: UNK
  29. METAXALONE [Concomitant]
     Active Substance: METAXALONE
     Dosage: UNK
  30. METFORMIN [Concomitant]
     Active Substance: METFORMIN HYDROCHLORIDE
     Dosage: UNK
  31. PALBOCICLIB [Concomitant]
     Active Substance: PALBOCICLIB
     Dosage: UNK
  32. PIOGLITAZONE [Concomitant]
     Active Substance: PIOGLITAZONE
     Dosage: UNK
  33. TRAMADOL [Concomitant]
     Active Substance: TRAMADOL
     Dosage: UNK
  34. TYLENOL [Concomitant]
     Active Substance: ACETAMINOPHEN
     Dosage: TAKE 1 (ONE) TABLET (500 MG TOTAL) BY MOUTH EVERY 6 (SIX) HOURS AS NEEDED- ORAL
     Route: 048
  35. LIPITOR [Concomitant]
     Active Substance: ATORVASTATIN CALCIUM
     Dosage: TAKE 1 (ONE) TABLET (40 MG TOTAL) BY MOUTH DAILY- ORAL
     Route: 048
     Dates: start: 20161116
  36. COREG [Concomitant]
     Active Substance: CARVEDILOL
     Dosage: TAKE 1 (ONE) TABLET (25 MG TOTAL) BY MOUTH ONCE DAILY- ORAL
     Route: 048
  37. KLONOPIN [Concomitant]
     Active Substance: CLONAZEPAM
     Dosage: TAKE 1 (ONE) TABLET (1 MG TOTAL) BY MOUTH 3 (THREE) TIMES A DAY
     Route: 048
  38. WELCHOL [Concomitant]
     Active Substance: COLESEVELAM HYDROCHLORIDE
     Dosage: 1250 MG, 2X/DAY
     Route: 048
  39. TRULICITY [Concomitant]
     Active Substance: DULAGLUTIDE
     Dosage: INJECT 0.5 ML UNDER THE SKIN ONCE A WEEK- SUBCUTANEOUS
     Route: 058
  40. NEURONTIN [Concomitant]
     Active Substance: GABAPENTIN
     Dosage: TAKE 1 (ONE) CAPSULE (300 MG TOTAL) BY MOUTH AT BEDTIME (DAYS SUPPLY PER FILL: 30)- ORAL
     Route: 048
     Dates: start: 20240809
  41. LIDODERM [Concomitant]
     Active Substance: LIDOCAINE
     Dosage: PLACE 1 (ONE) PATCH ON THE SKIN DAILY. REMOVE + DISCARD PATCH WITHIN 12 HOURS OR AS DIRECTED BY MD F
     Dates: start: 20221013
  42. PRINIL [LISINOPRIL] [Concomitant]
     Dosage: TAKE 1 (ONE) TABLET ( 40 MG TOTAL) BY MOUTH DAILY- ORAL
     Route: 048
  43. ZESTRIL [Concomitant]
     Active Substance: LISINOPRIL
     Dosage: TAKE 1 (ONE) TABLET ( 40 MG TOTAL) BY MOUTH DAILY- ORAL
     Route: 048
  44. IMODIUM A-D [Concomitant]
     Active Substance: LOPERAMIDE HYDROCHLORIDE
     Indication: Diarrhoea
     Dosage: TAKE 1 ONE ( 2MG TOTAL) BY MOUTH 4 (FOUR) TIMES A DAY AS NEEDED FOR DIARRHEA- ORAL
     Route: 048
     Dates: start: 20231025
  45. ATIVAN [Concomitant]
     Active Substance: LORAZEPAM
     Dosage: TAKE 1 TABLET (0.5 MG) 1 HOUR PRIOR TO SCAN TAKE 1 TABLET AT START OF SCAN
     Dates: start: 20240104, end: 20240822
  46. SKELAXIN [Concomitant]
     Active Substance: METAXALONE
     Indication: Muscle spasms
     Dosage: TAKE 1 (ONE) TABLE (800 MG TOTAL) BY MOUTH 3 (THREE)TIMES A DAY AS NEEDED FOR MUSCLE SPASMS- ORAL
     Route: 048
  47. GLUCOPHAGE [Concomitant]
     Active Substance: METFORMIN HYDROCHLORIDE
     Dosage: TAKE 1 (ONE) (TABLET 500 MG TOTAL) BY MOUTH ONCE DAILY - ORAL
     Route: 048
  48. ACTOS [Concomitant]
     Active Substance: PIOGLITAZONE HYDROCHLORIDE
     Dosage: TAKE 1 (ONE) TABLET (30 MG) BY MOUTH DAILY- ORAL
     Route: 048
     Dates: start: 20160816
  49. ULTRAM [Concomitant]
     Active Substance: TRAMADOL HYDROCHLORIDE
     Indication: Pain
     Dosage: TAKE 1 (ONE) TABLET (50 MG TOTAL) BY MOUTH AT BEDTIME AS NEEDED FOR PAIN (DAYS SUPPLY PER FILL 30) -
     Route: 048
     Dates: start: 20240726, end: 20240822

REACTIONS (20)
  - Renal failure [Unknown]
  - Neutropenia [Unknown]
  - Cytopenia [Unknown]
  - Anaemia [Unknown]
  - Neoplasm progression [Unknown]
  - Brain fog [Recovering/Resolving]
  - Muscle spasms [Not Recovered/Not Resolved]
  - White blood cell count decreased [Not Recovered/Not Resolved]
  - Urinary tract disorder [Unknown]
  - Musculoskeletal pain [Unknown]
  - Jaw disorder [Unknown]
  - Muscular weakness [Unknown]
  - Anal incontinence [Unknown]
  - Back pain [Unknown]
  - Fatigue [Unknown]
  - Arthralgia [Recovering/Resolving]
  - Pain in extremity [Recovering/Resolving]
  - Neck pain [Unknown]
  - Dyspnoea [Unknown]
  - Radiculopathy [Unknown]

NARRATIVE: CASE EVENT DATE: 20240611
